FAERS Safety Report 4374559-7 (Version None)
Quarter: 2004Q2

REPORT INFORMATION
  Report Type: 
  Country: None (occurrence: None)
  Receive Date: 20040602
  Receipt Date: 20040213
  Transmission Date: 20050107
  Serious: No
  Sender: FDA-Public Use
  Company Number: 200412640BWH

PATIENT
  Age: 59 Year
  Sex: Male
  Weight: 83.9154 kg

DRUGS (4)
  1. LEVITRA [Suspect]
     Indication: ERECTILE DYSFUNCTION
     Dosage: 20 MG, TOTAL DAILY, ORAL
     Route: 048
     Dates: start: 20040212
  2. VIAGRA [Concomitant]
  3. ATENOLOL [Concomitant]
  4. LOVASTATIN [Concomitant]

REACTIONS (5)
  - DIZZINESS [None]
  - DRY MOUTH [None]
  - DYSPEPSIA [None]
  - ERECTILE DYSFUNCTION [None]
  - HEADACHE [None]
